FAERS Safety Report 19039279 (Version 1)
Quarter: 2021Q1

REPORT INFORMATION
  Report Type: Spontaneous
  Country: ES (occurrence: ES)
  Receive Date: 20210322
  Receipt Date: 20210322
  Transmission Date: 20210420
  Serious: Yes (Hospitalization)
  Sender: FDA-Public Use
  Company Number: ES-TEVA-2021-ES-1891755

PATIENT
  Age: 54 Year
  Sex: Male

DRUGS (5)
  1. FUROSEMIDA [Interacting]
     Active Substance: FUROSEMIDE
     Indication: CHRONIC KIDNEY DISEASE
     Dosage: 160 MILLIGRAM DAILY;   1?1?0
     Route: 048
     Dates: start: 20201019, end: 20210304
  2. VALSARTAN/ HIDROCLOROTIAZIDA [Suspect]
     Active Substance: HYDROCHLOROTHIAZIDE\VALSARTAN
     Indication: HYPERTENSION
     Dosage: 1 DOSAGE FORMS DAILY;  1 FOR BREAKFAST
     Route: 048
     Dates: start: 20201103, end: 20210304
  3. CARVEDILOL. [Concomitant]
     Active Substance: CARVEDILOL
     Indication: HYPERTENSION
     Dosage: 2 DOSAGE FORMS DAILY; 1?0?1
     Route: 048
     Dates: start: 20201126, end: 20210304
  4. ESPIRONOLACTONA [Interacting]
     Active Substance: SPIRONOLACTONE
     Indication: CHRONIC KIDNEY DISEASE
     Dosage: UNIT DOSE :50 MG ,1/2 FOR BREAKFAST
     Route: 048
     Dates: start: 20201103, end: 20210304
  5. CARDURAN NEO 4 MG COMPRIMIDOS DE LIBERACION MODIFICADA, 28 COMPRIMIDOS [Concomitant]
     Indication: HYPERTENSION
     Dosage: 1 DOSAGE FORMS DAILY; 0?0?1
     Route: 048
     Dates: start: 20200325, end: 20210304

REACTIONS (2)
  - Acute kidney injury [Recovering/Resolving]
  - Drug interaction [Unknown]

NARRATIVE: CASE EVENT DATE: 20210304
